FAERS Safety Report 17853946 (Version 1)
Quarter: 2020Q2

REPORT INFORMATION
  Report Type: Report from Study
  Country: US (occurrence: US)
  Receive Date: 20200602
  Receipt Date: 20200602
  Transmission Date: 20200714
  Serious: Yes (Death, Hospitalization, Other)
  Sender: FDA-Public Use
  Company Number: US-SECURA BIO, INC.-2020US000723

PATIENT

DRUGS (3)
  1. DEXAMETHASONE. [Concomitant]
     Active Substance: DEXAMETHASONE
     Indication: PRODUCT USED FOR UNKNOWN INDICATION
  2. PANOBINOSTAT [Suspect]
     Active Substance: PANOBINOSTAT
     Indication: BRAIN STEM GLIOMA
     Dosage: 30 MG, DAILY (3 X 30 MG DURING WEEK 1 AND 3 X 30 MG DURING WEEK 3)
     Route: 048
     Dates: start: 20190402
  3. AMLODINE [AMLODIPINE] [Concomitant]
     Indication: PRODUCT USED FOR UNKNOWN INDICATION
     Dosage: UNK

REACTIONS (4)
  - White blood cell count decreased [Recovered/Resolved]
  - Hypophosphataemia [Recovered/Resolved]
  - Platelet count decreased [Recovered/Resolved]
  - Hypokalaemia [Recovered/Resolved]

NARRATIVE: CASE EVENT DATE: 20190423
